FAERS Safety Report 7100219-5 (Version None)
Quarter: 2010Q4

REPORT INFORMATION
  Report Type: 
  Country: None (occurrence: None)
  Receive Date: 20101112
  Receipt Date: 20101111
  Transmission Date: 20110411
  Serious: Yes (Death)
  Sender: FDA-Public Use
  Company Number: GR-ABBOTT-10P-066-0684663-00

PATIENT
  Sex: Male
  Weight: 72 kg

DRUGS (8)
  1. ZEMPLAR [Suspect]
     Indication: HYPERPARATHYROIDISM SECONDARY
     Route: 048
     Dates: start: 20100713, end: 20100923
  2. NEORAL [Concomitant]
     Indication: RENAL TRANSPLANT
     Route: 048
     Dates: start: 19890908, end: 20100923
  3. PRESOLON [Concomitant]
     Indication: RENAL TRANSPLANT
     Route: 048
     Dates: start: 19890908, end: 20100923
  4. ANGORON [Concomitant]
     Indication: CORONARY ARTERY DISEASE
     Route: 048
     Dates: start: 20080304, end: 20100923
  5. ASPIRIN [Concomitant]
     Indication: CORONARY ARTERY DISEASE
     Route: 048
     Dates: start: 20080304, end: 20100923
  6. LASIX [Concomitant]
     Indication: CARDIAC FAILURE
     Route: 048
     Dates: start: 20080304, end: 20100923
  7. CRESTOR [Concomitant]
     Indication: HYPERLIPIDAEMIA
     Route: 048
     Dates: start: 20090714, end: 20100923
  8. SOLOSA [Concomitant]
     Indication: TYPE 2 DIABETES MELLITUS
     Route: 048
     Dates: start: 20080803, end: 20100923

REACTIONS (1)
  - ACUTE PULMONARY OEDEMA [None]
